FAERS Safety Report 9236412 (Version 2)
Quarter: 2013Q2

REPORT INFORMATION
  Report Type: Spontaneous
  Country: TR (occurrence: TR)
  Receive Date: 20130417
  Receipt Date: 20130626
  Transmission Date: 20140414
  Serious: Yes (Other)
  Sender: FDA-Public Use
  Company Number: PHHY2013TR036201

PATIENT
  Sex: Female

DRUGS (9)
  1. VENLAFAXINE [Suspect]
     Indication: MIGRAINE
     Dosage: 75 MG, PER DAY
  2. VENLAFAXINE [Suspect]
     Dosage: 225 MG, PER DAY
  3. VENLAFAXINE [Suspect]
     Dosage: 900 MG, PER DAY
  4. VENLAFAXINE [Suspect]
     Dosage: 1050 MG, PER DAY
  5. VENLAFAXINE [Suspect]
     Dosage: 825 MG, PER DAY
  6. VENLAFAXINE [Suspect]
     Dosage: 2100 MG, PER DAY
  7. VENLAFAXINE [Suspect]
     Dosage: 1050 MG, PER DAY
  8. ETODOLAC [Concomitant]
     Dosage: 800 MG, PER DAY
  9. THIOCOLCHICOSIDE [Concomitant]
     Dosage: 8 MG, PER DAY

REACTIONS (7)
  - Muscle strain [Recovering/Resolving]
  - Pain [Unknown]
  - Sleep disorder [Unknown]
  - Fatigue [Unknown]
  - Dizziness [Unknown]
  - Nausea [Unknown]
  - Drug dependence [Unknown]
